FAERS Safety Report 18870387 (Version 6)
Quarter: 2022Q1

REPORT INFORMATION
  Report Type: Report from Study
  Country: CN (occurrence: CN)
  Receive Date: 20210209
  Receipt Date: 20220126
  Transmission Date: 20220423
  Serious: Yes (Hospitalization, Other)
  Sender: FDA-Public Use
  Company Number: CN-GILEAD-2021-0515844

PATIENT
  Sex: Male
  Weight: 62 kg

DRUGS (13)
  1. COBICISTAT\ELVITEGRAVIR\EMTRICITABINE\TENOFOVIR [Suspect]
     Active Substance: COBICISTAT\ELVITEGRAVIR\EMTRICITABINE\TENOFOVIR
     Indication: HIV infection
     Dosage: 1 DOSAGE FORM, QD
     Route: 048
     Dates: start: 20201229, end: 20210112
  2. TENOFOVIR DISOPROXIL FUMARATE/LAMIVUDINE/EFAVIRENZ [Concomitant]
     Indication: HIV infection
     Dosage: UNK
     Dates: start: 2010, end: 20201228
  3. DOPAMINE HYDROCHLORIDE [Concomitant]
     Active Substance: DOPAMINE HYDROCHLORIDE
  4. ORNITHINE ASPARTATE [Concomitant]
     Active Substance: ORNITHINE ASPARTATE
  5. SULFASUCCINAMIDE [Concomitant]
  6. SOMATOSTATIN [Concomitant]
     Active Substance: SOMATOSTATIN
     Indication: Gastritis haemorrhagic
     Dosage: UNK
     Dates: start: 20201222, end: 20201229
  7. HEPARIN SODIUM [Concomitant]
     Active Substance: HEPARIN SODIUM
  8. PANTOPRAZOLE SODIUM [Concomitant]
     Active Substance: PANTOPRAZOLE SODIUM
     Indication: Peptic ulcer haemorrhage
     Dosage: UNK
     Dates: start: 20201227, end: 20201229
  9. PLACENTA POLYPEPTIDE [Concomitant]
  10. ALBUMIN HUMAN OCTAPHARMA [Concomitant]
     Indication: Hypoproteinaemia
     Dosage: UNK
     Dates: start: 20201227, end: 20210102
  11. INVESTIGATIONAL PRODUCT [Concomitant]
     Active Substance: INVESTIGATIONAL PRODUCT
     Indication: Anaemia
  12. COMPOUND AMMONIUM GLYCYRRHETATE S [Concomitant]
  13. DEXAMETHASONE SODIUM PHOSPHATE [Concomitant]
     Active Substance: DEXAMETHASONE SODIUM PHOSPHATE
     Dosage: UNK
     Dates: start: 20201203, end: 20201203

REACTIONS (2)
  - Liver injury [Not Recovered/Not Resolved]
  - Opportunistic infection [Recovered/Resolved]

NARRATIVE: CASE EVENT DATE: 20201231
